FAERS Safety Report 9531106 (Version 1)
Quarter: 2013Q3

REPORT INFORMATION
  Report Type: Spontaneous
  Country: GB (occurrence: GB)
  Receive Date: 20130918
  Receipt Date: 20130918
  Transmission Date: 20140515
  Serious: Yes (Other)
  Sender: FDA-Public Use
  Company Number: GB-ACCORD-019371

PATIENT
  Age: 79 Year
  Sex: Female

DRUGS (2)
  1. AMLODIPINE [Suspect]
     Indication: HYPERTENSION
     Route: 065
     Dates: start: 20130429
  2. PARACETAMOL [Concomitant]

REACTIONS (14)
  - Depression [Recovered/Resolved]
  - Headache [Recovered/Resolved]
  - Dizziness [Recovered/Resolved]
  - Erythema [Recovered/Resolved]
  - Feeling hot [Recovered/Resolved]
  - Hypertension [Recovered/Resolved]
  - Sensation of foreign body [Recovered/Resolved]
  - Cough [Not Recovered/Not Resolved]
  - Constipation [Recovered/Resolved]
  - Pain in jaw [Not Recovered/Not Resolved]
  - Paraesthesia oral [Recovered/Resolved]
  - Micturition urgency [Recovered/Resolved]
  - Local swelling [Not Recovered/Not Resolved]
  - Pain in extremity [Not Recovered/Not Resolved]
